FAERS Safety Report 8037111-8 (Version None)
Quarter: 2012Q1

REPORT INFORMATION
  Report Type: 
  Country: None (occurrence: None)
  Receive Date: 20120111
  Receipt Date: 20120109
  Transmission Date: 20120608
  Serious: Yes (Death, Hospitalization)
  Sender: FDA-Public Use
  Company Number: US-PFIZER INC-2012006599

PATIENT
  Sex: Female
  Weight: 53.515 kg

DRUGS (5)
  1. LIPITOR [Suspect]
     Dosage: 20 MG, UNK
     Route: 048
  2. LYRICA [Suspect]
     Dosage: 75 MG, UNK
     Route: 048
  3. NORVASC [Suspect]
     Dosage: 5 MG, UNK
     Route: 048
  4. DETROL LA [Suspect]
     Dosage: 4 MG, UNK
     Route: 048
  5. ZOLOFT [Suspect]
     Dosage: 50 MG, UNK
     Route: 048

REACTIONS (2)
  - MALAISE [None]
  - CEREBROVASCULAR ACCIDENT [None]
